FAERS Safety Report 15337487 (Version 1)
Quarter: 2018Q3

REPORT INFORMATION
  Report Type: Spontaneous
  Country: US (occurrence: US)
  Receive Date: 20180831
  Receipt Date: 20180831
  Transmission Date: 20181010
  Serious: No
  Sender: FDA-Public Use
  Company Number: US-PFIZER INC-2018351036

PATIENT
  Age: 32 Year
  Sex: Male
  Weight: 76.2 kg

DRUGS (3)
  1. LYRICA [Suspect]
     Active Substance: PREGABALIN
     Indication: BACK PAIN
     Dosage: 50 MG, 3X/DAY
     Route: 048
     Dates: start: 20180222, end: 201808
  2. LYRICA [Suspect]
     Active Substance: PREGABALIN
     Indication: ARTHRALGIA
  3. LYRICA [Suspect]
     Active Substance: PREGABALIN
     Indication: CHEST PAIN

REACTIONS (7)
  - Pain [Unknown]
  - Condition aggravated [Not Recovered/Not Resolved]
  - Restlessness [Not Recovered/Not Resolved]
  - Fatigue [Unknown]
  - Asthenia [Unknown]
  - Insomnia [Not Recovered/Not Resolved]
  - Intentional product misuse [Unknown]
